FAERS Safety Report 16305488 (Version 4)
Quarter: 2019Q3

REPORT INFORMATION
  Report Type: Spontaneous
  Country: JP (occurrence: JP)
  Receive Date: 20190513
  Receipt Date: 20190916
  Transmission Date: 20191004
  Serious: Yes (Life-Threatening, Hospitalization, Other)
  Sender: FDA-Public Use
  Company Number: JP-ASTRAZENECA-2019SE53588

PATIENT
  Age: 65 Year
  Sex: Female
  Weight: 53 kg

DRUGS (11)
  1. TAGRISSO [Suspect]
     Active Substance: OSIMERTINIB
     Indication: NON-SMALL CELL LUNG CANCER STAGE IV
     Route: 048
     Dates: start: 20190126, end: 20190402
  2. ZESULAN [Concomitant]
     Active Substance: MEQUITAZINE
     Indication: ASTHMA
     Route: 048
  3. CETIRIZINE HYDROCHLORIDE. [Concomitant]
     Active Substance: CETIRIZINE HYDROCHLORIDE
     Indication: ASTHMA
     Route: 048
  4. LIMAPROST ALFADEX [Concomitant]
     Active Substance: LIMAPROST
     Indication: SPINAL COMPRESSION FRACTURE
     Route: 048
  5. KETOPROFEN. [Concomitant]
     Active Substance: KETOPROFEN
     Route: 062
  6. LYRICA [Concomitant]
     Active Substance: PREGABALIN
     Route: 048
  7. LOXOPROFEN [Concomitant]
     Active Substance: LOXOPROFEN
     Indication: SPINAL COMPRESSION FRACTURE
     Route: 048
  8. PRANLUKAST [Concomitant]
     Active Substance: PRANLUKAST
     Indication: ASTHMA
     Route: 048
  9. HOKUNALIN:TAPE [Concomitant]
     Active Substance: TULOBUTEROL
     Indication: ASTHMA
     Route: 062
  10. QVAR [Concomitant]
     Active Substance: BECLOMETHASONE DIPROPIONATE
     Indication: ASTHMA
     Route: 055
  11. LAVIN [Concomitant]
     Indication: SPINAL COMPRESSION FRACTURE
     Route: 048

REACTIONS (4)
  - Loss of consciousness [Recovered/Resolved]
  - Long QT syndrome [Recovered/Resolved]
  - Torsade de pointes [Recovered/Resolved]
  - Ventricular tachycardia [Recovered/Resolved]

NARRATIVE: CASE EVENT DATE: 20190402
